FAERS Safety Report 5411457-1 (Version None)
Quarter: 2007Q3

REPORT INFORMATION
  Report Type: 
  Country: None (occurrence: None)
  Receive Date: 20070810
  Receipt Date: 20070731
  Transmission Date: 20080115
  Serious: Yes (Hospitalization)
  Sender: FDA-Public Use
  Company Number: SG-PFIZER INC-2007065127

PATIENT

DRUGS (1)
  1. PHENYTOIN SODIUM [Suspect]
     Route: 048

REACTIONS (2)
  - ANTICONVULSANT DRUG LEVEL BELOW THERAPEUTIC [None]
  - THERAPEUTIC RESPONSE DECREASED [None]
